FAERS Safety Report 11247343 (Version 1)
Quarter: 2015Q3

REPORT INFORMATION
  Report Type: Report from Study
  Country: GB (occurrence: GB)
  Receive Date: 20150708
  Receipt Date: 20150708
  Transmission Date: 20151125
  Serious: Yes (Other)
  Sender: FDA-Public Use
  Company Number: GB-JNJFOC-20150612478

PATIENT
  Sex: Female

DRUGS (2)
  1. STELARA [Suspect]
     Active Substance: USTEKINUMAB
     Indication: OSTEOPOROSIS
     Route: 058
  2. STELARA [Suspect]
     Active Substance: USTEKINUMAB
     Indication: OSTEOPOROSIS
     Route: 058
     Dates: start: 20150610

REACTIONS (8)
  - Fall [Unknown]
  - Incorrect dose administered [Unknown]
  - Off label use [Unknown]
  - Upper limb fracture [Unknown]
  - Hip arthroplasty [Unknown]
  - Psoriasis [Unknown]
  - Epilepsy [Unknown]
  - Breast disorder [Unknown]

NARRATIVE: CASE EVENT DATE: 2014
